FAERS Safety Report 15243158 (Version 2)
Quarter: 2019Q3

REPORT INFORMATION
  Report Type: Spontaneous
  Country: US (occurrence: US)
  Receive Date: 20180806
  Receipt Date: 20190828
  Transmission Date: 20191004
  Serious: Yes (Life-Threatening, Hospitalization, Other)
  Sender: FDA-Public Use
  Company Number: US-MYLANLABS-2018M1056891

PATIENT

DRUGS (8)
  1. LITHIUM. [Concomitant]
     Active Substance: LITHIUM
     Indication: SCHIZOAFFECTIVE DISORDER
     Dosage: 450 MG, BID, 12 HOUR
     Route: 065
  2. LISINOPRIL. [Suspect]
     Active Substance: LISINOPRIL
     Indication: MYOCARDITIS
     Route: 065
  3. TRAZODONE [Concomitant]
     Active Substance: TRAZODONE HYDROCHLORIDE
     Indication: SCHIZOAFFECTIVE DISORDER
     Dosage: 50 MG, QD, AT BEDTIME
     Route: 065
  4. CLOZAPINE. [Suspect]
     Active Substance: CLOZAPINE
     Indication: SCHIZOAFFECTIVE DISORDER
     Dosage: 75 MG, QD, AT BEDTIME
     Route: 065
  5. CARVEDILOL. [Suspect]
     Active Substance: CARVEDILOL
     Indication: MYOCARDITIS
     Route: 065
  6. COLCHICINE. [Suspect]
     Active Substance: COLCHICINE
     Indication: MYOCARDITIS
     Route: 065
  7. INDOMETACIN [Suspect]
     Active Substance: INDOMETHACIN
     Indication: MYOCARDITIS
     Route: 065
  8. RISPERIDONE. [Concomitant]
     Active Substance: RISPERIDONE
     Indication: SCHIZOAFFECTIVE DISORDER
     Dosage: 2 MG, 12 HOUR, BID
     Route: 065

REACTIONS (4)
  - Myocarditis [Recovered/Resolved]
  - Pulmonary oedema [Recovered/Resolved]
  - Acute respiratory failure [Recovered/Resolved]
  - Treatment failure [Unknown]
